FAERS Safety Report 10238456 (Version 1)
Quarter: 2014Q2

REPORT INFORMATION
  Report Type: Spontaneous
  Country: SE (occurrence: None)
  Receive Date: 20140612
  Receipt Date: 20140612
  Transmission Date: 20141212
  Serious: Yes (Other)
  Sender: FDA-Public Use
  Company Number: SYM-2014-21663

PATIENT
  Age: 52 Year
  Sex: Male

DRUGS (4)
  1. FLAGYL [Suspect]
     Indication: ANTIBIOTIC PROPHYLAXIS
  2. LEVAXIN (LEVOTHYROXINE SODIUM) (LEVOTHYROXINE SODIUM) [Concomitant]
  3. TAZOCIN (PIP/TAZO) (PIPERACILLIN SODIUM, TAZOBACTAM SODIUM) [Concomitant]
  4. CEFOTAXIME (CEFTOTAXIME SODIUM) (CEFOTAXIME SODIUM) [Concomitant]

REACTIONS (2)
  - Corneal oedema [None]
  - Vision blurred [None]
